FAERS Safety Report 4470111-3 (Version None)
Quarter: 2004Q3

REPORT INFORMATION
  Report Type: 
  Country: None (occurrence: None)
  Receive Date: 20040910
  Receipt Date: 20040803
  Transmission Date: 20050211
  Serious: No
  Sender: FDA-Public Use
  Company Number: 2004-00315

PATIENT
  Age: 83 Year
  Sex: Male
  Weight: 71.7 kg

DRUGS (2)
  1. VELCADE [Suspect]
     Indication: MULTIPLE MYELOMA
     Dosage: 2.30 MG, INTRAVENOUS
     Route: 042
     Dates: start: 20040501
  2. ASPIRIN [Concomitant]

REACTIONS (4)
  - FATIGUE [None]
  - HYPOAESTHESIA [None]
  - NEUROPATHY PERIPHERAL [None]
  - OEDEMA PERIPHERAL [None]
